FAERS Safety Report 24443774 (Version 2)
Quarter: 2024Q4

REPORT INFORMATION
  Report Type: Report from Study
  Country: US (occurrence: US)
  Receive Date: 20241016
  Receipt Date: 20241017
  Transmission Date: 20250114
  Serious: No
  Sender: ROCHE
  Company Number: US-ROCHE-2092294

PATIENT
  Age: 42 Year
  Sex: Female

DRUGS (4)
  1. RITUXAN [Suspect]
     Active Substance: RITUXIMAB
     Indication: Systemic lupus erythematosus
     Dosage: DAY 1 AND DAY 15, EVERY 3 MONTHS, QUANTITY: 2-500 MG VIALS, 100, 500 MG SINGLE-USE VIAL
     Route: 042
     Dates: start: 20180105
  2. RITUXAN [Suspect]
     Active Substance: RITUXIMAB
     Indication: Aortitis
  3. HYDROXYCHLOROQUINE [Concomitant]
     Active Substance: HYDROXYCHLOROQUINE
  4. ZOLPIDEM [Concomitant]
     Active Substance: ZOLPIDEM TARTRATE

REACTIONS (2)
  - Off label use [Unknown]
  - Malaise [Unknown]
